FAERS Safety Report 8989798 (Version 1)
Quarter: 2012Q4

REPORT INFORMATION
  Report Type: 
  Country: FR (occurrence: FR)
  Receive Date: 20121228
  Receipt Date: 20121228
  Transmission Date: 20130627
  Serious: Yes (Hospitalization, Other)
  Sender: FDA-Public Use
  Company Number: FR-PFIZER INC-2012329886

PATIENT
  Age: 25 Year
  Sex: Male

DRUGS (2)
  1. TRIATEC [Suspect]
     Dosage: 5 mg, daily
     Route: 048
     Dates: end: 20121128
  2. ZYVOXID [Suspect]
     Dosage: 600 mg, 2x/day
     Route: 048
     Dates: start: 20121124, end: 20121128

REACTIONS (5)
  - Hyperkalaemia [Recovered/Resolved]
  - Renal failure acute [Unknown]
  - Diarrhoea [Unknown]
  - Bacillus infection [Unknown]
  - Dyspnoea [Unknown]
